FAERS Safety Report 7964537-0 (Version None)
Quarter: 2011Q4

REPORT INFORMATION
  Report Type: 
  Country: None (occurrence: None)
  Receive Date: 20111208
  Receipt Date: 20111129
  Transmission Date: 20120403
  Serious: Yes (Hospitalization)
  Sender: FDA-Public Use
  Company Number: PHHY2011JP104786

PATIENT
  Age: 30 Year
  Sex: Male

DRUGS (2)
  1. TEGRETOL [Suspect]
     Indication: EPILEPSY
     Dosage: UNK
     Route: 048
     Dates: start: 20110801
  2. LEVETIRACETAM [Concomitant]
     Route: 048
     Dates: start: 20110901

REACTIONS (3)
  - NEPHRITIS [None]
  - RASH [None]
  - LIVER DISORDER [None]
